FAERS Safety Report 16710018 (Version 1)
Quarter: 2019Q4

REPORT INFORMATION
  Report Type: Spontaneous
  Country: US (occurrence: US)
  Receive Date: 20190815
  Receipt Date: 20190815
  Transmission Date: 20200122
  Serious: Yes (Hospitalization)
  Sender: FDA-Public Use
  Company Number: None

PATIENT
  Age: 73 Year
  Sex: Female
  Weight: 61.2 kg

DRUGS (6)
  1. SIMVASTATIN. [Concomitant]
     Active Substance: SIMVASTATIN
  2. SYNTHROID [Concomitant]
     Active Substance: LEVOTHYROXINE SODIUM
  3. JEUVEAU [Suspect]
     Active Substance: PRABOTULINUMTOXINA-XVFS
     Indication: SKIN WRINKLING
     Dosage: ?          QUANTITY:3 INJECTION(S);OTHER FREQUENCY:ONE SET OF INJECTI;?
     Route: 030
  4. VITAMIN SUPPLEMENTS [Concomitant]
     Active Substance: VITAMINS
  5. MVI [Concomitant]
     Active Substance: VITAMINS
  6. VIT D [Concomitant]
     Active Substance: VITAMIN D NOS

REACTIONS (3)
  - Vision blurred [None]
  - Blindness unilateral [None]
  - Diplopia [None]

NARRATIVE: CASE EVENT DATE: 20190808
